FAERS Safety Report 11776511 (Version 1)
Quarter: 2015Q4

REPORT INFORMATION
  Report Type: Spontaneous
  Country: US (occurrence: None)
  Receive Date: 20151123
  Receipt Date: 20151123
  Transmission Date: 20160304
  Serious: Yes (Other)
  Sender: FDA-Public Use
  Company Number: None

PATIENT
  Age: 57 Year
  Sex: Female
  Weight: 87.54 kg

DRUGS (21)
  1. ALLEGRA [Concomitant]
     Active Substance: FEXOFENADINE HYDROCHLORIDE
  2. ARMOUR THYROID [Concomitant]
     Active Substance: THYROID, PORCINE\THYROID, UNSPECIFIED
  3. POTASSIUM [Concomitant]
     Active Substance: POTASSIUM
  4. PEPCID [Concomitant]
     Active Substance: FAMOTIDINE
  5. VITAMIN D [Concomitant]
     Active Substance: CHOLECALCIFEROL
  6. RENAL PLUS [Concomitant]
  7. PROPRANOLOL [Concomitant]
     Active Substance: PROPRANOLOL\PROPRANOLOL HYDROCHLORIDE
  8. CALTRATE WITH VITAMIN D [Concomitant]
     Active Substance: CALCIUM CARBONATE\CHOLECALCIFEROL
  9. MOMETASONE FUROATE. [Concomitant]
     Active Substance: MOMETASONE FUROATE
  10. MAGNESIUM [Concomitant]
     Active Substance: MAGNESIUM
  11. VITAMIN B-6 [Concomitant]
     Active Substance: PYRIDOXINE
  12. MOTRIN [Concomitant]
     Active Substance: IBUPROFEN
  13. ZANTAC [Concomitant]
     Active Substance: RANITIDINE HYDROCHLORIDE
  14. VITAMIN B12 [Concomitant]
     Active Substance: CYANOCOBALAMIN
  15. DEXILANT [Suspect]
     Active Substance: DEXLANSOPRAZOLE
     Indication: GASTROOESOPHAGEAL REFLUX DISEASE
     Dosage: 1 PILL
     Route: 048
     Dates: start: 20151001, end: 20151021
  16. VASOTEL [Concomitant]
  17. PRINIVIL [Concomitant]
     Active Substance: LISINOPRIL
  18. LASIX [Concomitant]
     Active Substance: FUROSEMIDE
  19. TAURINE [Concomitant]
     Active Substance: TAURINE
  20. COQ10 [Concomitant]
     Active Substance: UBIDECARENONE
  21. ANUSOL-HC [Concomitant]

REACTIONS (2)
  - Peripheral swelling [None]
  - Tendonitis [None]

NARRATIVE: CASE EVENT DATE: 20151021
